FAERS Safety Report 8955907 (Version 3)
Quarter: 2013Q2

REPORT INFORMATION
  Report Type: Spontaneous
  Country: US (occurrence: US)
  Receive Date: 20121210
  Receipt Date: 20130409
  Transmission Date: 20140414
  Serious: Yes (Death)
  Sender: FDA-Public Use
  Company Number: US-ELI_LILLY_AND_COMPANY-US201211008698

PATIENT
  Age: 44 Year
  Sex: Male
  Weight: 99.77 kg

DRUGS (19)
  1. ZYPREXA RELPREVV [Suspect]
     Indication: SCHIZOPHRENIA
     Dosage: 300 MG, UNK
     Dates: start: 20110216
  2. ZYPREXA RELPREVV [Suspect]
     Dosage: 405 MG, MONTHLY (1/M)
     Dates: start: 20110315
  3. ZYPREXA RELPREVV [Suspect]
     Dosage: 405 MG, MONTHLY (1/M)
     Dates: start: 20120720
  4. ZYPREXA RELPREVV [Suspect]
     Dosage: 405 MG, MONTHLY (1/M)
     Dates: start: 20120912
  5. ZYPREXA RELPREVV [Suspect]
     Dosage: 405 MG, MONTHLY (1/M)
     Dates: start: 20121004
  6. CLONAZEPAM [Concomitant]
     Dosage: 1 MG, BID
  7. RANITIDINE [Concomitant]
     Dosage: 300 MG, BID
  8. SIMVASTATIN [Concomitant]
     Dosage: 20 MG, QD
  9. HALDOL [Concomitant]
     Dosage: 15 MG, QD
  10. HALDOL [Concomitant]
     Dosage: 200 MG, MONTHLY (1/M)
     Route: 030
  11. COGENTIN [Concomitant]
     Dosage: 1 MG, TID
  12. RISPERIDONE [Concomitant]
     Dosage: 2 MG, BID
  13. LASIX [Concomitant]
     Dosage: 20 MG, QD
  14. SPIRIVA [Concomitant]
     Dosage: 18 UG, QD
     Route: 055
  15. POTASSIUM [Concomitant]
     Dosage: 10 MEQ, QD
  16. VITAMIN D [Concomitant]
     Dosage: 1000 IU, BID
  17. PAROXETINE [Concomitant]
     Dosage: 40 MG, QD
  18. OTHER RESPIRATORY SYSTEM PRODUCTS [Concomitant]
     Dosage: UNK, PRN
  19. HALDOL DECANOATE [Concomitant]
     Dosage: 200 MG, MONTHLY (1/M)
     Route: 030

REACTIONS (2)
  - Hypoxia [Fatal]
  - Drug dose omission [Unknown]
